FAERS Safety Report 8885749 (Version 3)
Quarter: 2012Q4

REPORT INFORMATION
  Report Type: 
  Country: GB (occurrence: GB)
  Receive Date: 20121101
  Receipt Date: 20121217
  Transmission Date: 20130627
  Serious: Yes (Other)
  Sender: FDA-Public Use
  Company Number: GB-PFIZER INC-2012269157

PATIENT
  Age: 62 Year
  Sex: Female
  Weight: 75 kg

DRUGS (2)
  1. NICORETTE INHALTER 10 MG [Suspect]
     Indication: PRODUCT USED FOR UNKNOWN INDICATION
     Dosage: UNK
     Route: 055
  2. NICORETTE [Suspect]
     Dosage: UNK
     Route: 065

REACTIONS (4)
  - Type 2 diabetes mellitus [Unknown]
  - Intentional drug misuse [Unknown]
  - Vaginal discharge [Unknown]
  - Vulvovaginal pain [Unknown]
